FAERS Safety Report 19436050 (Version 1)
Quarter: 2021Q2

REPORT INFORMATION
  Report Type: Other
  Country: DE (occurrence: DE)
  Receive Date: 20210618
  Receipt Date: 20210618
  Transmission Date: 20210717
  Serious: Yes (Other)
  Sender: FDA-Public Use
  Company Number: DE-GE HEALTHCARE LIFE SCIENCES-2018CSU003512

PATIENT

DRUGS (4)
  1. DOTAREM [Suspect]
     Active Substance: GADOTERATE MEGLUMINE
     Indication: PRODUCT USED FOR UNKNOWN INDICATION
     Dosage: 10 ML, SINGLE
     Route: 042
     Dates: start: 20180320, end: 20180320
  2. DOTAREM [Suspect]
     Active Substance: GADOTERATE MEGLUMINE
     Indication: MAGNETIC RESONANCE IMAGING
     Dosage: 10 ML, SINGLE
     Route: 042
     Dates: start: 20170831, end: 20170831
  3. CLARISCAN [Suspect]
     Active Substance: GADOTERATE MEGLUMINE
     Indication: MAGNETIC RESONANCE IMAGING
     Dosage: 12 ML, SINGLE
     Route: 042
     Dates: start: 20180515, end: 20180515
  4. CLARISCAN [Suspect]
     Active Substance: GADOTERATE MEGLUMINE
     Indication: PRODUCT USED FOR UNKNOWN INDICATION

REACTIONS (26)
  - Skin tightness [Recovering/Resolving]
  - Arthralgia [Recovering/Resolving]
  - Body temperature decreased [Recovering/Resolving]
  - Skin irritation [Recovering/Resolving]
  - Skin induration [Recovering/Resolving]
  - Joint noise [Recovering/Resolving]
  - Pruritus [Recovering/Resolving]
  - Myosclerosis [Recovering/Resolving]
  - Dry eye [Recovering/Resolving]
  - Muscle twitching [Recovering/Resolving]
  - Myalgia [Recovering/Resolving]
  - Eye irritation [Recovering/Resolving]
  - Temperature intolerance [Recovering/Resolving]
  - Muscle contracture [Unknown]
  - Blood heavy metal increased [Recovering/Resolving]
  - Sleep disorder [Recovering/Resolving]
  - Bone pain [Recovering/Resolving]
  - Aphasia [Recovering/Resolving]
  - Disturbance in attention [Recovering/Resolving]
  - Skin hypertrophy [Recovering/Resolving]
  - Skin atrophy [Recovering/Resolving]
  - Dizziness [Recovering/Resolving]
  - Gadolinium deposition disease [Recovering/Resolving]
  - Muscle discomfort [Unknown]
  - Piloerection [Recovering/Resolving]
  - Joint stiffness [Recovering/Resolving]

NARRATIVE: CASE EVENT DATE: 20180321
